FAERS Safety Report 7463020-9 (Version None)
Quarter: 2011Q2

REPORT INFORMATION
  Report Type: 
  Country: None (occurrence: None)
  Receive Date: 20110506
  Receipt Date: 20110209
  Transmission Date: 20111010
  Serious: Yes (Other)
  Sender: FDA-Public Use
  Company Number: FR-BAYER-2011-013468

PATIENT
  Age: 29 Year
  Sex: Male

DRUGS (1)
  1. LEVITRA [Suspect]
     Indication: ERECTILE DYSFUNCTION
     Dosage: 10 MG, ONCE

REACTIONS (5)
  - CHILLS [None]
  - HYPERSENSITIVITY [None]
  - CHOKING SENSATION [None]
  - PHARYNGEAL OEDEMA [None]
  - TACHYCARDIA [None]
